FAERS Safety Report 9209352 (Version 4)
Quarter: 2013Q2

REPORT INFORMATION
  Report Type: Report from Study
  Country: FR (occurrence: FR)
  Receive Date: 20130404
  Receipt Date: 20130604
  Transmission Date: 20140414
  Serious: Yes (Life-Threatening, Hospitalization)
  Sender: FDA-Public Use
  Company Number: FR-CELGENEUS-056-21880-13034208

PATIENT
  Age: 58 Year
  Sex: Male
  Weight: 72 kg

DRUGS (17)
  1. REVLIMID [Suspect]
     Indication: PLASMA CELL MYELOMA
     Route: 048
     Dates: start: 20111026, end: 20121115
  2. REVLIMID [Suspect]
     Route: 048
     Dates: start: 20130116, end: 20130205
  3. REVLIMID [Suspect]
     Route: 048
     Dates: end: 20130320
  4. CARFILZOMIB [Suspect]
     Indication: PLASMA CELL MYELOMA
     Dosage: DAY 1-2
     Route: 065
     Dates: start: 20111026, end: 20111027
  5. CARFILZOMIB [Suspect]
     Dosage: DAY 8-9, 15-16
     Route: 065
     Dates: start: 20111102, end: 20111110
  6. CARFILZOMIB [Suspect]
     Dosage: DAY 1-2, 8-9, 15-16
     Route: 065
     Dates: start: 20120411, end: 20120426
  7. CARFILZOMIB [Suspect]
     Dosage: DAY 1-2, 15-16
     Route: 065
     Dates: start: 20130213, end: 20130228
  8. DEXAMETHASONE [Suspect]
     Indication: PLASMA CELL MYELOMA
     Dosage: DAY 1, 8, 15, 22
     Route: 065
     Dates: start: 20111026, end: 20111116
  9. DEXAMETHASONE [Suspect]
     Dosage: DAY 1, 8, 15, 22
     Route: 065
     Dates: start: 20120118, end: 20130208
  10. DEXAMETHASONE [Suspect]
     Dosage: DAY 1, 8, 15, 22
     Route: 065
     Dates: start: 20120116, end: 20130206
  11. DEXAMETHASONE [Suspect]
     Dosage: DAY 1, 8, 15, 22
     Route: 065
     Dates: end: 20130318
  12. CRESTOR [Concomitant]
     Indication: HYPERCHOLESTEROLAEMIA
     Dosage: 10 MILLIGRAM
     Route: 048
     Dates: start: 200902
  13. NEXIUM [Concomitant]
     Indication: PROPHYLAXIS
     Dosage: 20 MILLIGRAM
     Route: 048
     Dates: start: 20130131, end: 20130322
  14. KARDEGIC [Concomitant]
     Indication: ANTICOAGULANT THERAPY
     Dosage: 75 MILLIGRAM
     Route: 048
     Dates: start: 20130131, end: 20130322
  15. KARDEGIC [Concomitant]
     Indication: ANTIPLATELET THERAPY
  16. VALACICLOVIR [Concomitant]
     Indication: ANTIVIRAL PROPHYLAXIS
     Dosage: 2 GRAM
     Route: 048
     Dates: start: 20130131, end: 20130322
  17. VITAMIN D [Concomitant]
     Indication: OSTEOPOROSIS PROPHYLAXIS
     Route: 048
     Dates: start: 20111221

REACTIONS (2)
  - Large intestine perforation [Recovered/Resolved]
  - Peritonitis [Recovered/Resolved]
